FAERS Safety Report 8939887 (Version 1)
Quarter: 2012Q4

REPORT INFORMATION
  Report Type: 
  Country: US (occurrence: US)
  Receive Date: 20121130
  Receipt Date: 20121130
  Transmission Date: 20130627
  Serious: No
  Sender: FDA-Public Use
  Company Number: US-009507513-1210USA004090

PATIENT
  Sex: Female

DRUGS (1)
  1. CLARITIN-D 24 HOUR [Suspect]
     Indication: RESPIRATORY TRACT CONGESTION
     Dosage: UNK, Once
     Route: 048
     Dates: start: 20121003

REACTIONS (3)
  - Dyskinesia [Unknown]
  - Insomnia [Unknown]
  - Drug ineffective [Unknown]
